FAERS Safety Report 4684536-4 (Version None)
Quarter: 2005Q2

REPORT INFORMATION
  Report Type: 
  Country: None (occurrence: None)
  Receive Date: 20050603
  Receipt Date: 20050520
  Transmission Date: 20051028
  Serious: Yes (Hospitalization, Other)
  Sender: FDA-Public Use
  Company Number: 2005043292

PATIENT
  Age: 82 Year
  Sex: Female
  Weight: 49.8957 kg

DRUGS (7)
  1. XALATAN [Suspect]
     Indication: GLAUCOMA
     Dosage: (1 IN 1 D), OPHTHALMIC
     Route: 047
  2. ALPHAGAN [Concomitant]
  3. LIPITOR [Concomitant]
  4. FOLIC ACID [Concomitant]
  5. PREVACID [Concomitant]
  6. LORAZEPAM [Concomitant]
  7. IRON (IRON) [Concomitant]

REACTIONS (15)
  - ANAEMIA [None]
  - BACTERIA BLOOD IDENTIFIED [None]
  - BLEPHAROSPASM [None]
  - CARDIAC MURMUR [None]
  - EYE PAIN [None]
  - FEELING ABNORMAL [None]
  - GASTRIC PH DECREASED [None]
  - GROWTH OF EYELASHES [None]
  - HYPERCHLORHYDRIA [None]
  - HYPERSENSITIVITY [None]
  - INTRAOCULAR PRESSURE INCREASED [None]
  - NASOPHARYNGITIS [None]
  - NERVOUSNESS [None]
  - TRICHIASIS [None]
  - VASCULAR RUPTURE [None]
